FAERS Safety Report 8890764 (Version 1)
Quarter: 2012Q4

REPORT INFORMATION
  Report Type: 
  Country: GB (occurrence: GB)
  Receive Date: 20121107
  Receipt Date: 20121107
  Transmission Date: 20130627
  Serious: Yes (Hospitalization)
  Sender: FDA-Public Use
  Company Number: GB-TEVA-367105ISR

PATIENT
  Age: 60 Year
  Sex: Male

DRUGS (21)
  1. ISOSORBIDE MONONITRATE [Suspect]
  2. NICORANDIL [Suspect]
     Route: 048
  3. ASPIRIN [Suspect]
     Route: 048
  4. ETANERCEPT [Suspect]
     Indication: RHEUMATOID ARTHRITIS
     Route: 058
     Dates: start: 20120420, end: 20120519
  5. ATORVASTATIN [Concomitant]
  6. LIRAGLUTIDE [Concomitant]
     Route: 058
  7. AMLODIPINE [Concomitant]
  8. INSULIN [Concomitant]
     Dosage: Insulin Lisard
     Route: 058
  9. BISOPROLOL [Concomitant]
  10. CANDESARTAN [Concomitant]
  11. FUROSEMIDE [Concomitant]
  12. NIZATIDINE [Concomitant]
  13. MORPHINE SULPHATE [Concomitant]
  14. ORAMORPH [Concomitant]
  15. PARACETAMOL [Concomitant]
  16. PIZOTIFEN [Concomitant]
  17. GTN [Concomitant]
  18. SALBUTAMOL [Concomitant]
  19. RIVAROXABAN [Concomitant]
     Dates: start: 201207
  20. AMITRIPTYLINE [Concomitant]
     Dates: start: 201207
  21. GABAPENTIN [Concomitant]
     Dates: start: 201207

REACTIONS (3)
  - Angina pectoris [Recovered/Resolved]
  - Drug ineffective [Unknown]
  - Tonsillar ulcer [Unknown]
